FAERS Safety Report 20694134 (Version 1)
Quarter: 2022Q2

REPORT INFORMATION
  Report Type: Spontaneous
  Country: RO (occurrence: RO)
  Receive Date: 20220411
  Receipt Date: 20220411
  Transmission Date: 20220721
  Serious: Yes (Hospitalization, Other)
  Sender: FDA-Public Use
  Company Number: RO-AMGEN-ROUSP2022056020

PATIENT
  Age: 26 Year
  Sex: Female
  Weight: 74 kg

DRUGS (10)
  1. TRASTUZUMAB [Suspect]
     Active Substance: TRASTUZUMAB
     Indication: HER2 positive breast cancer
     Dosage: UNK
     Route: 058
  2. DOCETAXEL [Concomitant]
     Active Substance: DOCETAXEL
     Dosage: 75 MILLIGRAM/SQ. METER, Q3WK
     Dates: start: 201904
  3. PERTUZUMAB [Concomitant]
     Active Substance: PERTUZUMAB
     Dosage: 840 MILLIGRAM, Q3WK
     Dates: start: 201904
  4. PERTUZUMAB [Concomitant]
     Active Substance: PERTUZUMAB
     Dosage: 420 MILLIGRAM, Q3WK
  5. ADO-TRASTUZUMAB EMTANSINE [Concomitant]
     Active Substance: ADO-TRASTUZUMAB EMTANSINE
     Dosage: 3.6 MILLIGRAM/KILOGRAM, Q3WK
     Route: 042
  6. PACLITAXEL [Concomitant]
     Active Substance: PACLITAXEL
     Dosage: 40 MILLIGRAM/SQ. METER, QWK
  7. PACLITAXEL [Concomitant]
     Active Substance: PACLITAXEL
     Dosage: 60 MILLIGRAM/SQ. METER, QWK
     Dates: start: 2021
  8. PACLITAXEL [Concomitant]
     Active Substance: PACLITAXEL
     Dosage: 80 MILLIGRAM/SQ. METER, QWK
     Dates: start: 2021
  9. PACLITAXEL [Concomitant]
     Active Substance: PACLITAXEL
     Dosage: 175 MILLIGRAM/SQ. METER, QWK
     Dates: start: 2021
  10. FULVESTRANT [Concomitant]
     Active Substance: FULVESTRANT
     Dosage: UNK
     Dates: start: 202110

REACTIONS (7)
  - Breast cancer metastatic [Unknown]
  - Nail dystrophy [Unknown]
  - Dermatitis acneiform [Unknown]
  - Neutropenia [Unknown]
  - Thrombocytopenia [Unknown]
  - Weight decreased [Unknown]
  - Off label use [Unknown]

NARRATIVE: CASE EVENT DATE: 20210101
